FAERS Safety Report 11347858 (Version 1)
Quarter: 2015Q3

REPORT INFORMATION
  Report Type: Spontaneous
  Country: US (occurrence: US)
  Receive Date: 20150803
  Receipt Date: 20150803
  Transmission Date: 20151125
  Serious: Yes (Other)
  Sender: FDA-Public Use
  Company Number: US-ELI_LILLY_AND_COMPANY-US201110006421

PATIENT
  Age: 71 Year
  Sex: Female

DRUGS (1)
  1. ZYPREXA [Suspect]
     Active Substance: OLANZAPINE
     Indication: WEIGHT INCREASED
     Dosage: 2.5 MG, QD
     Dates: start: 201109, end: 20111019

REACTIONS (10)
  - Confusional state [Unknown]
  - Rash [Not Recovered/Not Resolved]
  - Joint swelling [Recovering/Resolving]
  - Off label use [Unknown]
  - Alopecia [Unknown]
  - Hair texture abnormal [Unknown]
  - Drug dose omission [Unknown]
  - Nasopharyngitis [Unknown]
  - Weight increased [Unknown]
  - Memory impairment [Unknown]

NARRATIVE: CASE EVENT DATE: 201110
